FAERS Safety Report 13776221 (Version 1)
Quarter: 2017Q3

REPORT INFORMATION
  Report Type: Spontaneous
  Country: IT (occurrence: IT)
  Receive Date: 20170720
  Receipt Date: 20170720
  Transmission Date: 20171127
  Serious: Yes (Other)
  Sender: FDA-Public Use
  Company Number: IT-PFIZER INC-2017877

PATIENT
  Age: 39 Year
  Sex: Female

DRUGS (2)
  1. AKINETON [Suspect]
     Active Substance: BIPERIDEN HYDROCHLORIDE
     Indication: DYSTONIA
     Dosage: 1 DF, FREQ: TOTAL
     Route: 030
     Dates: start: 20130916, end: 20130916
  2. DIAZEPAM. [Suspect]
     Active Substance: DIAZEPAM
     Indication: DYSTONIA
     Dosage: 10 MG, FREQ: TOTAL
     Route: 030
     Dates: start: 20130916, end: 20130916

REACTIONS (1)
  - Erythema [Recovering/Resolving]

NARRATIVE: CASE EVENT DATE: 20130916
